FAERS Safety Report 24858747 (Version 1)
Quarter: 2025Q1

REPORT INFORMATION
  Report Type: Spontaneous
  Country: US (occurrence: US)
  Receive Date: 20250118
  Receipt Date: 20250118
  Transmission Date: 20250409
  Serious: No
  Sender: AUROBINDO
  Company Number: US-AUROBINDO-AUR-APL-2024-024575

PATIENT
  Age: 18 Year
  Sex: Female
  Weight: 54.43 kg

DRUGS (1)
  1. LEVONORGESTREL [Suspect]
     Active Substance: LEVONORGESTREL
     Indication: Sexual dysfunction
     Route: 065
     Dates: start: 20240506, end: 20240506

REACTIONS (2)
  - Haemorrhage [Unknown]
  - Intermenstrual bleeding [Unknown]

NARRATIVE: CASE EVENT DATE: 20240513
